FAERS Safety Report 21664360 (Version 1)
Quarter: 2022Q4

REPORT INFORMATION
  Report Type: Spontaneous
  Country: US (occurrence: US)
  Receive Date: 20221130
  Receipt Date: 20221130
  Transmission Date: 20230113
  Serious: No
  Sender: FDA-Public Use
  Company Number: US-THERAPEUTICSMD-2022TMD00759

PATIENT
  Age: 53 Year
  Sex: Female
  Weight: 62.585 kg

DRUGS (2)
  1. BIJUVA [Suspect]
     Active Substance: ESTRADIOL\PROGESTERONE
     Indication: Hormone replacement therapy
     Dosage: 1 CAPSULES, 1X/DAY EARLY EACH EVENING WITH FOOD
     Route: 048
     Dates: start: 20220629, end: 20220715
  2. WILEY^S FINEST PLANT BASED CATCHFREE OMEGA 3 [Concomitant]
     Dosage: 1 TABLETS, 1X/DAY IN THE MORNING
     Dates: start: 202203

REACTIONS (6)
  - Back pain [Recovering/Resolving]
  - Abdominal pain lower [Recovering/Resolving]
  - Dizziness [Recovered/Resolved]
  - Headache [Recovering/Resolving]
  - Somnolence [Recovering/Resolving]
  - Fatigue [Recovering/Resolving]

NARRATIVE: CASE EVENT DATE: 20220629
